FAERS Safety Report 7110191-X (Version None)
Quarter: 2010Q4

REPORT INFORMATION
  Report Type: 
  Country: None (occurrence: None)
  Receive Date: 20101118
  Receipt Date: 20101108
  Transmission Date: 20110411
  Serious: Yes (Other)
  Sender: FDA-Public Use
  Company Number: KR-JNJFOC-20101105729

PATIENT
  Age: 29 Year
  Sex: Female

DRUGS (1)
  1. OFLOXACIN [Suspect]
     Indication: PROPHYLAXIS
     Route: 048

REACTIONS (2)
  - HAND-FOOT-AND-MOUTH DISEASE [None]
  - PYELONEPHRITIS ACUTE [None]
